FAERS Safety Report 24785388 (Version 1)
Quarter: 2024Q4

REPORT INFORMATION
  Report Type: Spontaneous
  Country: US (occurrence: US)
  Receive Date: 20241228
  Receipt Date: 20241228
  Transmission Date: 20250115
  Serious: Yes (Death, Other)
  Sender: GLENMARK
  Company Number: US-GLENMARK PHARMACEUTICALS-2024GMK096540

PATIENT

DRUGS (16)
  1. GABAPENTIN [Suspect]
     Active Substance: GABAPENTIN
     Indication: Product used for unknown indication
     Dosage: UNK (INGESTION)
     Route: 048
  2. IRON [Suspect]
     Active Substance: IRON
     Indication: Product used for unknown indication
     Dosage: UNK, (INGESTION)
     Route: 048
  3. IRON [Suspect]
     Active Substance: IRON
     Dosage: UNK, (INGESTION)
     Route: 048
  4. IRON [Suspect]
     Active Substance: IRON
     Dosage: UNK, (INGESTION)
     Route: 048
  5. IRON [Suspect]
     Active Substance: IRON
     Dosage: UNK, (INGESTION)
     Route: 048
  6. IRON [Suspect]
     Active Substance: IRON
     Dosage: UNK, (INGESTION)
     Route: 048
  7. IRON [Suspect]
     Active Substance: IRON
     Dosage: UNK, (INGESTION)
     Route: 048
  8. METHAMPHETAMINE [Suspect]
     Active Substance: METHAMPHETAMINE
     Indication: Product used for unknown indication
     Dosage: UNK (INGESTION)
     Route: 048
  9. DIPHENHYDRAMINE [Suspect]
     Active Substance: DIPHENHYDRAMINE
     Indication: Product used for unknown indication
     Dosage: UNK (INGESTION)
     Route: 048
  10. RISPERIDONE [Suspect]
     Active Substance: RISPERIDONE
     Indication: Product used for unknown indication
     Dosage: UNK (INGESTION)
     Route: 048
  11. ACETAMINOPHEN\CAFFEINE [Suspect]
     Active Substance: ACETAMINOPHEN\CAFFEINE
     Indication: Product used for unknown indication
     Dosage: UNK, (INGESTION)
     Route: 048
  12. IBUPROFEN [Suspect]
     Active Substance: IBUPROFEN
     Indication: Product used for unknown indication
     Dosage: UNK (INGESTION)
     Route: 048
  13. HYDROXYZINE [Suspect]
     Active Substance: HYDROXYZINE HYDROCHLORIDE
     Indication: Product used for unknown indication
     Dosage: UNK (INGESTION)
     Route: 048
  14. ATORVASTATIN [Suspect]
     Active Substance: ATORVASTATIN
     Indication: Product used for unknown indication
     Dosage: UNK (INGESTION)
     Route: 048
  15. HALOPERIDOL [Suspect]
     Active Substance: HALOPERIDOL
     Indication: Product used for unknown indication
     Dosage: UNK (INGESTION)
     Route: 048
  16. SODIUM SALICYLATE [Suspect]
     Active Substance: SODIUM SALICYLATE
     Indication: Product used for unknown indication
     Dosage: UNK (INGESTION)
     Route: 048

REACTIONS (2)
  - Cardio-respiratory arrest [Fatal]
  - Completed suicide [Fatal]
